FAERS Safety Report 6680797-0 (Version None)
Quarter: 2010Q2

REPORT INFORMATION
  Report Type: 
  Country: None (occurrence: None)
  Receive Date: 20100414
  Receipt Date: 20100401
  Transmission Date: 20101027
  Serious: Yes (Hospitalization)
  Sender: FDA-Public Use
  Company Number: PHHY2009NL55631

PATIENT
  Sex: Male

DRUGS (5)
  1. ZOMETA [Suspect]
     Dosage: 4 MG, UNK
     Route: 042
     Dates: start: 20080131, end: 20091215
  2. ZOMETA [Suspect]
     Dosage: 4 MG, UNK
     Dates: start: 20100112
  3. ZOMETA [Suspect]
     Dosage: 4 MG, UNK
     Dates: start: 20100209
  4. ZOMETA [Suspect]
     Dosage: 4 MG, UNK
     Dates: start: 20100309
  5. ZOMETA [Suspect]
     Dosage: 4 MG, UNK
     Dates: start: 20100401

REACTIONS (7)
  - ABDOMINAL DISTENSION [None]
  - BONE PAIN [None]
  - NERVOUS SYSTEM DISORDER [None]
  - OEDEMA PERIPHERAL [None]
  - RENAL FAILURE [None]
  - RENAL SURGERY [None]
  - SPINAL CORD NEOPLASM [None]
